FAERS Safety Report 18514356 (Version 2)
Quarter: 2020Q4

REPORT INFORMATION
  Report Type: Spontaneous
  Country: US (occurrence: US)
  Receive Date: 20201117
  Receipt Date: 20201126
  Transmission Date: 20210114
  Serious: Yes (Life-Threatening, Hospitalization, Other)
  Sender: FDA-Public Use
  Company Number: US-BAXTER-2020BAX022917

PATIENT
  Age: 52 Year
  Sex: Female

DRUGS (15)
  1. INSULIN REGULAR [Concomitant]
     Active Substance: INSULIN NOS
     Indication: PRODUCT USED FOR UNKNOWN INDICATION
     Dosage: 2 UNITS/HOUR
     Route: 065
  2. AMINOCAPROIC ACID. [Concomitant]
     Active Substance: AMINOCAPROIC ACID
     Indication: HAEMORRHAGE PROPHYLAXIS
     Route: 065
  3. NEXTERONE [Suspect]
     Active Substance: AMIODARONE HYDROCHLORIDE
     Indication: ATRIAL FIBRILLATION
     Dosage: 2 150-MG BOLUSES
     Route: 040
  4. NEXTERONE [Suspect]
     Active Substance: AMIODARONE HYDROCHLORIDE
     Indication: ARRHYTHMIA PROPHYLAXIS
     Dosage: SINGLE
     Route: 042
  5. NEXTERONE [Suspect]
     Active Substance: AMIODARONE HYDROCHLORIDE
     Indication: VENTRICULAR EXTRASYSTOLES
  6. HEPARIN [Suspect]
     Active Substance: HEPARIN SODIUM
     Indication: ANTICOAGULANT THERAPY
     Route: 065
  7. AMIODARONE [Suspect]
     Active Substance: AMIODARONE
     Indication: ATRIAL FIBRILLATION
     Route: 048
  8. LEVOTHYROXINE. [Concomitant]
     Active Substance: LEVOTHYROXINE
     Indication: PRODUCT USED FOR UNKNOWN INDICATION
     Route: 048
  9. NEXTERONE [Suspect]
     Active Substance: AMIODARONE HYDROCHLORIDE
     Indication: DISEASE RECURRENCE
  10. HEPARIN [Suspect]
     Active Substance: HEPARIN SODIUM
     Dosage: 10 DAYS BEFORE SURGERY
     Route: 065
  11. AMIODARONE [Suspect]
     Active Substance: AMIODARONE
     Indication: ARRHYTHMIA PROPHYLAXIS
     Route: 048
  12. PHENYLEPHRINE [Concomitant]
     Active Substance: PHENYLEPHRINE HYDROCHLORIDE
     Indication: PRODUCT USED FOR UNKNOWN INDICATION
     Route: 065
  13. HEPARIN [Suspect]
     Active Substance: HEPARIN SODIUM
     Indication: THROMBOSIS PROPHYLAXIS
     Route: 058
  14. SODIUM BICARBONATE. [Concomitant]
     Active Substance: SODIUM BICARBONATE
     Indication: PRODUCT USED FOR UNKNOWN INDICATION
     Dosage: IV PUSH
     Route: 042
  15. DEXTROSE. [Concomitant]
     Active Substance: DEXTROSE
     Indication: PRODUCT USED FOR UNKNOWN INDICATION
     Route: 065

REACTIONS (9)
  - Encephalopathy [Recovered/Resolved]
  - Hypoglycaemia [Recovered/Resolved]
  - Drug-induced liver injury [Recovered/Resolved]
  - Nosocomial infection [Recovered/Resolved]
  - Hepatotoxicity [Recovered/Resolved]
  - Hypogammaglobulinaemia [Recovered/Resolved]
  - Respiratory alkalosis [Recovered/Resolved]
  - Drug hypersensitivity [Recovered/Resolved]
  - Mixed liver injury [Recovered/Resolved]
